FAERS Safety Report 6791539-2 (Version None)
Quarter: 2010Q2

REPORT INFORMATION
  Report Type: 
  Country: None (occurrence: None)
  Receive Date: 20100624
  Receipt Date: 20090429
  Transmission Date: 20101027
  Serious: Yes (Other)
  Sender: FDA-Public Use
  Company Number: US-PFIZER INC-2008057469

PATIENT
  Sex: Female
  Weight: 54 kg

DRUGS (7)
  1. PROVERA [Suspect]
     Indication: HORMONE REPLACEMENT THERAPY
     Route: 048
     Dates: start: 19800101, end: 19950501
  2. PROVERA [Suspect]
     Indication: MENOPAUSE
  3. PREMARIN [Suspect]
     Indication: HORMONE REPLACEMENT THERAPY
     Dosage: UNK
     Dates: start: 19800101, end: 19950501
  4. PREMARIN [Suspect]
     Indication: MENOPAUSE
  5. ESTRADERM [Suspect]
     Indication: HORMONE REPLACEMENT THERAPY
     Dates: start: 19800101, end: 19950501
  6. ESTRADERM [Suspect]
     Indication: MENOPAUSE
  7. ESTROGENS [Suspect]
     Indication: MENOPAUSE

REACTIONS (2)
  - BREAST CANCER FEMALE [None]
  - CARDIOVASCULAR DISORDER [None]
